FAERS Safety Report 17585329 (Version 1)
Quarter: 2020Q1

REPORT INFORMATION
  Report Type: Spontaneous
  Country: US (occurrence: US)
  Receive Date: 20200326
  Receipt Date: 20200326
  Transmission Date: 20200409
  Serious: Yes (Hospitalization, Other)
  Sender: FDA-Public Use
  Company Number: US-HIKMA PHARMACEUTICALS USA INC.-US-H14001-20-01463

PATIENT
  Sex: Female
  Weight: 38 kg

DRUGS (5)
  1. INCB018424 [Suspect]
     Active Substance: RUXOLITINIB
     Indication: ACUTE LYMPHOCYTIC LEUKAEMIA
     Dosage: DAYS 1- 10, 21 - 30
     Route: 048
     Dates: start: 20191217, end: 20200131
  2. METHOTREXATE. [Suspect]
     Active Substance: METHOTREXATE
     Indication: ACUTE LYMPHOCYTIC LEUKAEMIA
     Dosage: IM2 DAYS 1, 11, 21, 31
     Route: 042
     Dates: start: 20191217, end: 20200131
  3. METHOTREXATE. [Suspect]
     Active Substance: METHOTREXATE
     Dosage: IM2 DAYS 1, 31
     Route: 037
     Dates: start: 20191217, end: 20200131
  4. VINCRISTINE [Suspect]
     Active Substance: VINCRISTINE
     Indication: ACUTE LYMPHOCYTIC LEUKAEMIA
     Dosage: IM2 DAYS 1,11, 21, 31
     Route: 042
     Dates: start: 20191217, end: 20200131
  5. PEGASPARGASE [Suspect]
     Active Substance: PEGASPARGASE
     Indication: ACUTE LYMPHOCYTIC LEUKAEMIA
     Dosage: IM2 DAYS 2, 22
     Route: 042
     Dates: start: 20191218, end: 20200111

REACTIONS (11)
  - Escherichia bacteraemia [Recovering/Resolving]
  - Neutropenic colitis [Recovering/Resolving]
  - Colitis [Unknown]
  - Encephalopathy [Not Recovered/Not Resolved]
  - Febrile neutropenia [Unknown]
  - Encephalitis fungal [Not Recovered/Not Resolved]
  - Clostridium test positive [Recovering/Resolving]
  - Aspergillus infection [Recovered/Resolved]
  - Movement disorder [Unknown]
  - Toxicity to various agents [Unknown]
  - Abscess fungal [Recovered/Resolved]

NARRATIVE: CASE EVENT DATE: 20200126
